FAERS Safety Report 18498580 (Version 2)
Quarter: 2021Q1

REPORT INFORMATION
  Report Type: Spontaneous
  Country: US (occurrence: US)
  Receive Date: 20201113
  Receipt Date: 20210303
  Transmission Date: 20210419
  Serious: No
  Sender: FDA-Public Use
  Company Number: US-SA-2020SA319789

PATIENT
  Age: 36 Year
  Sex: Female

DRUGS (1)
  1. DUPIXENT [Suspect]
     Active Substance: DUPILUMAB
     Indication: ILLNESS
     Dosage: 300 MG, QOW
     Route: 058
     Dates: start: 20200327

REACTIONS (7)
  - Pruritus [Unknown]
  - Insomnia [Unknown]
  - Lip swelling [Recovered/Resolved]
  - Skin exfoliation [Unknown]
  - Sleep disorder [Unknown]
  - Dry skin [Unknown]
  - Product use in unapproved indication [Unknown]

NARRATIVE: CASE EVENT DATE: 20201103
